FAERS Safety Report 17276685 (Version 1)
Quarter: 2020Q1

REPORT INFORMATION
  Report Type: Report from Study
  Country: ES (occurrence: ES)
  Receive Date: 20200116
  Receipt Date: 20200116
  Transmission Date: 20200409
  Serious: Yes (Other)
  Sender: FDA-Public Use
  Company Number: ES-TEVA-2020-ES-1167634

PATIENT
  Age: 83 Year
  Sex: Male

DRUGS (13)
  1. ENALAPRIL 5 MG COMPRIMIDO [Suspect]
     Active Substance: ENALAPRIL
     Dosage: 1-0-0
     Route: 048
     Dates: start: 2015, end: 20180509
  2. OMEPRAZOL (2141A) [Concomitant]
     Active Substance: OMEPRAZOLE
  3. TRAJENTA 5 MG COMPRIMIDOS RECUBIERTOS CON PELICULA [Concomitant]
  4. ATORVASTATINA 40 MG COMPRIMIDO [Concomitant]
  5. ADIRO 100 MG COMPRIMIDOS GASTRORRESISTENTES EFG [Concomitant]
     Active Substance: ASPIRIN
  6. GABAPENTINA 100 MG CAPSULA [Concomitant]
  7. FORMODUAL [Concomitant]
     Active Substance: BECLOMETHASONE DIPROPIONATE\FORMOTEROL FUMARATE
  8. FUROSEMIDA (1615A) [Concomitant]
     Active Substance: FUROSEMIDE
  9. ROCOZ 25 MG COMPRIMIDOS RECUBIERTOS CON PELICULA EFG [Concomitant]
  10. BISOPROLOL 2,5 MG COMPRIMIDO [Concomitant]
     Active Substance: BISOPROLOL
  11. NOVOMIX [Concomitant]
     Active Substance: INSULIN ASPART
  12. PARACETAMOL (12A) [Concomitant]
     Active Substance: ACETAMINOPHEN
  13. ESCITALOPRAM 20 MG COMPRIMIDO [Concomitant]

REACTIONS (1)
  - Chronic kidney disease [Recovering/Resolving]

NARRATIVE: CASE EVENT DATE: 201805
